FAERS Safety Report 5526396-5 (Version None)
Quarter: 2007Q4

REPORT INFORMATION
  Report Type: 
  Country: None (occurrence: None)
  Receive Date: 20071127
  Receipt Date: 20071122
  Transmission Date: 20080405
  Serious: Yes (Disabling)
  Sender: FDA-Public Use
  Company Number: FR-AVENTIS-200613734FR

PATIENT
  Age: 48 Year
  Sex: Female
  Weight: 56 kg

DRUGS (1)
  1. TAXOTERE [Suspect]
     Route: 042
     Dates: start: 20020615, end: 20020915

REACTIONS (2)
  - LYMPHOEDEMA [None]
  - MORPHOEA [None]
